FAERS Safety Report 17582430 (Version 1)
Quarter: 2020Q1

REPORT INFORMATION
  Report Type: Spontaneous
  Country: US (occurrence: US)
  Receive Date: 20200325
  Receipt Date: 20200325
  Transmission Date: 20200409
  Serious: Yes (Other)
  Sender: FDA-Public Use
  Company Number: US-IGSA-SR10010083

PATIENT
  Age: 60 Year
  Sex: Female

DRUGS (1)
  1. GAMUNEX-C [Suspect]
     Active Substance: HUMAN IMMUNOGLOBULIN G
     Indication: PRIMARY IMMUNODEFICIENCY SYNDROME
     Route: 065

REACTIONS (5)
  - Upper respiratory tract infection [Not Recovered/Not Resolved]
  - Haemoptysis [Not Recovered/Not Resolved]
  - Chest pain [Not Recovered/Not Resolved]
  - Pyrexia [Not Recovered/Not Resolved]
  - Suspected transmission of an infectious agent via product [Not Recovered/Not Resolved]

NARRATIVE: CASE EVENT DATE: 20200312
